FAERS Safety Report 13421565 (Version 1)
Quarter: 2017Q2

REPORT INFORMATION
  Report Type: Spontaneous
  Country: GB (occurrence: GB)
  Receive Date: 20170410
  Receipt Date: 20170410
  Transmission Date: 20170830
  Serious: Yes (Hospitalization)
  Sender: FDA-Public Use
  Company Number: GB-AUROBINDO-AUR-APL-2017-31831

PATIENT
  Age: 30 Year
  Sex: Female

DRUGS (3)
  1. BRIVARACETAM [Interacting]
     Active Substance: BRIVARACETAM
     Indication: EPILEPSY
     Dosage: 100 MG, TWO TIMES A DAY
     Route: 048
     Dates: start: 20161201, end: 20170215
  2. CARBAMAZEPINE. [Concomitant]
     Active Substance: CARBAMAZEPINE
     Indication: EPILEPSY
     Dosage: 400 MG, TWO TIMES A DAY
     Route: 048
  3. PHENYTOIN. [Suspect]
     Active Substance: PHENYTOIN
     Indication: EPILEPSY
     Dosage: 300 MG, ONCE A DAY
     Route: 048

REACTIONS (2)
  - Anticonvulsant drug level increased [Recovered/Resolved]
  - Drug interaction [Unknown]

NARRATIVE: CASE EVENT DATE: 20170120
